FAERS Safety Report 17864033 (Version 1)
Quarter: 2020Q2

REPORT INFORMATION
  Report Type: Spontaneous
  Country: US (occurrence: US)
  Receive Date: 20200605
  Receipt Date: 20200605
  Transmission Date: 20200714
  Serious: No
  Sender: FDA-Public Use
  Company Number: US-JNJFOC-20200525044

PATIENT
  Sex: Male

DRUGS (1)
  1. MENS ROGAINE EXTRA STRENGTH [Suspect]
     Active Substance: MINOXIDIL
     Indication: ALOPECIA
     Dosage: HALF CAPFUL 1X PER DAY
     Route: 061
     Dates: start: 20200516, end: 20200517

REACTIONS (6)
  - Underdose [Unknown]
  - Application site pruritus [Recovering/Resolving]
  - Application site dryness [Recovering/Resolving]
  - Application site rash [Recovering/Resolving]
  - Inappropriate schedule of product administration [Unknown]
  - Application site exfoliation [Recovering/Resolving]

NARRATIVE: CASE EVENT DATE: 20200517
